FAERS Safety Report 6994733-0 (Version None)
Quarter: 2010Q3

REPORT INFORMATION
  Report Type: 
  Country: None (occurrence: None)
  Receive Date: 20100915
  Receipt Date: 20100909
  Transmission Date: 20110219
  Serious: Yes (Other)
  Sender: FDA-Public Use
  Company Number: 2010MA002491

PATIENT
  Sex: Female

DRUGS (1)
  1. METOCLOPRAMIDE [Suspect]
     Dosage: PO
     Route: 048
     Dates: start: 20011101, end: 20080201

REACTIONS (3)
  - ECONOMIC PROBLEM [None]
  - EMOTIONAL DISTRESS [None]
  - TARDIVE DYSKINESIA [None]
